FAERS Safety Report 10016810 (Version 2)
Quarter: 2014Q2

REPORT INFORMATION
  Report Type: Spontaneous
  Country: IT (occurrence: IT)
  Receive Date: 20140318
  Receipt Date: 20140607
  Transmission Date: 20141212
  Serious: No
  Sender: FDA-Public Use
  Company Number: PHHY2014IT029934

PATIENT
  Sex: Male

DRUGS (4)
  1. CLARITHROMYCIN [Suspect]
     Indication: TOOTH INFECTION
     Dosage: 500 MG, ONCE/SINGLE
     Route: 048
     Dates: start: 20140112, end: 20140112
  2. AUGMENTIN [Suspect]
     Indication: TOOTH INFECTION
     Dosage: 2 DF, QD
     Route: 048
     Dates: start: 20140110, end: 20140113
  3. OKI [Suspect]
     Indication: TOOTHACHE
     Dates: start: 20140110, end: 20140113
  4. PARACETAMOL [Concomitant]
     Indication: TOOTHACHE
     Route: 048
     Dates: start: 20140110, end: 20140113

REACTIONS (5)
  - Periorbital oedema [Recovered/Resolved]
  - Headache [Recovered/Resolved]
  - Nausea [Recovered/Resolved]
  - Vomiting [Recovered/Resolved]
  - Drug abuse [Recovered/Resolved]
